FAERS Safety Report 17235973 (Version 1)
Quarter: 2020Q1

REPORT INFORMATION
  Report Type: Report from Study
  Country: NL (occurrence: NL)
  Receive Date: 20200106
  Receipt Date: 20200106
  Transmission Date: 20200409
  Serious: Yes (Other)
  Sender: FDA-Public Use
  Company Number: NL-ROCHE-2507527

PATIENT
  Age: 57 Year
  Sex: Female

DRUGS (4)
  1. FOLIUMZUUR [Concomitant]
     Active Substance: FOLIC ACID
     Dosage: 5MG, 1X/W
     Route: 065
     Dates: start: 20151012
  2. NAPROXEN. [Concomitant]
     Active Substance: NAPROXEN
     Dosage: 500MG, 2X/D
     Route: 065
     Dates: start: 20160324
  3. RITUXIMAB. [Suspect]
     Active Substance: RITUXIMAB
     Indication: RHEUMATOID ARTHRITIS
     Dosage: ACCORDING TO SCHEDULE
     Route: 041
     Dates: start: 20161209, end: 20161223
  4. METHOTREXAAT [METHOTREXATE] [Concomitant]
     Active Substance: METHOTREXATE
     Dosage: 7.5MG, 1X/W
     Route: 065
     Dates: start: 20151012

REACTIONS (1)
  - Circulatory collapse [Recovered/Resolved]

NARRATIVE: CASE EVENT DATE: 20161223
